FAERS Safety Report 6505526-2 (Version None)
Quarter: 2009Q4

REPORT INFORMATION
  Report Type: 
  Country: None (occurrence: None)
  Receive Date: 20091217
  Receipt Date: 20091217
  Transmission Date: 20100525
  Serious: No
  Sender: FDA-Public Use
  Company Number: None

PATIENT
  Age: 50 Year
  Sex: Female
  Weight: 70.3075 kg

DRUGS (1)
  1. TOPAMAX [Suspect]
     Indication: MIGRAINE PROPHYLAXIS
     Dosage: 1 TABLET DAILY
     Dates: start: 20090725, end: 20090727

REACTIONS (3)
  - DIZZINESS [None]
  - HOT FLUSH [None]
  - MENORRHAGIA [None]
